FAERS Safety Report 8386456-0 (Version None)
Quarter: 2012Q2

REPORT INFORMATION
  Report Type: 
  Country: None (occurrence: None)
  Receive Date: 20120523
  Receipt Date: 20120508
  Transmission Date: 20120825
  Serious: Yes (Hospitalization)
  Sender: FDA-Public Use
  Company Number: DSJ-2012-08433

PATIENT
  Age: 76 Year
  Sex: Female

DRUGS (6)
  1. FORMOTEROL/BUDESONIDE (BUDESONIDE, FORMOTEROL) [Concomitant]
  2. PHENOBARBITAL TAB [Concomitant]
  3. BENICAR [Suspect]
     Indication: HYPERTENSION
     Dosage: 40 MG (40 MG, 1 IN 1 D), PER ORAL
     Route: 048
     Dates: start: 20120401
  4. DIAZEPAM [Concomitant]
  5. IPRATROPIUM BROMIDE [Concomitant]
  6. BUDESONIDE [Concomitant]

REACTIONS (2)
  - ASTHMA [None]
  - CONDITION AGGRAVATED [None]
